FAERS Safety Report 23620693 (Version 2)
Quarter: 2024Q1

REPORT INFORMATION
  Report Type: Spontaneous
  Country: US (occurrence: None)
  Receive Date: 20240312
  Receipt Date: 20240322
  Transmission Date: 20240409
  Serious: No
  Sender: FDA-Public Use
  Company Number: US-Encube-000602

PATIENT
  Age: 72 Year
  Sex: Female

DRUGS (3)
  1. TAVABOROLE [Suspect]
     Active Substance: TAVABOROLE
     Indication: Onychomycosis
     Dosage: SOLUTION
     Dates: start: 2023, end: 202401
  2. MELOXICAM [Concomitant]
     Active Substance: MELOXICAM
     Indication: Inflammation
  3. OMEGA 3 [Concomitant]
     Active Substance: CAPSAICIN
     Indication: Inflammation

REACTIONS (2)
  - Wrong technique in product usage process [Unknown]
  - Primary stabbing headache [Recovered/Resolved]

NARRATIVE: CASE EVENT DATE: 20230101
